FAERS Safety Report 18478875 (Version 1)
Quarter: 2020Q4

REPORT INFORMATION
  Report Type: Spontaneous
  Country: US (occurrence: US)
  Receive Date: 20201109
  Receipt Date: 20201109
  Transmission Date: 20210114
  Serious: Yes (Other)
  Sender: FDA-Public Use
  Company Number: US-TEVA-2020-US-1845854

PATIENT
  Sex: Female

DRUGS (1)
  1. COPAXONE [Suspect]
     Active Substance: GLATIRAMER ACETATE
     Route: 042

REACTIONS (4)
  - Erythema [Unknown]
  - Incorrect route of product administration [Unknown]
  - Heart rate increased [Unknown]
  - Throat tightness [Unknown]
